FAERS Safety Report 6386758-3 (Version None)
Quarter: 2009Q4

REPORT INFORMATION
  Report Type: 
  Country: None (occurrence: None)
  Receive Date: 20091002
  Receipt Date: 20090929
  Transmission Date: 20100525
  Serious: Yes (Hospitalization)
  Sender: FDA-Public Use
  Company Number: A0809532A

PATIENT
  Age: 8 Year
  Sex: Female

DRUGS (3)
  1. PAXIL [Suspect]
     Indication: DEPRESSION
     Dosage: 20MG TWICE PER DAY
     Route: 048
     Dates: start: 20010101, end: 20050101
  2. PAXIL CR [Suspect]
     Indication: DEPRESSION
     Dosage: 25MG TWICE PER DAY
     Route: 048
     Dates: start: 20050101
  3. NO CONCURRENT MEDICATION [Concomitant]

REACTIONS (3)
  - BACK PAIN [None]
  - DECREASED APPETITE [None]
  - WEIGHT INCREASED [None]
